FAERS Safety Report 11909174 (Version 3)
Quarter: 2016Q3

REPORT INFORMATION
  Report Type: Report from Study
  Country: US (occurrence: US)
  Receive Date: 20160112
  Receipt Date: 20160927
  Transmission Date: 20161109
  Serious: Yes (Other)
  Sender: FDA-Public Use
  Company Number: US-BEH-2015057437

PATIENT
  Sex: Female

DRUGS (1)
  1. ZEMAIRA [Suspect]
     Active Substance: .ALPHA.1-PROTEINASE INHIBITOR HUMAN
     Indication: ALPHA-1 ANTI-TRYPSIN DEFICIENCY

REACTIONS (8)
  - Emphysema [Unknown]
  - Asthenia [Unknown]
  - Dyspnoea [Unknown]
  - Nasopharyngitis [Unknown]
  - Peripheral swelling [Unknown]
  - Chronic obstructive pulmonary disease [Unknown]
  - Oedema [Unknown]
  - Arthropathy [Unknown]

NARRATIVE: CASE EVENT DATE: 2013
